FAERS Safety Report 21506824 (Version 5)
Quarter: 2023Q2

REPORT INFORMATION
  Report Type: Report from Study
  Country: US (occurrence: US)
  Receive Date: 20221026
  Receipt Date: 20230509
  Transmission Date: 20230721
  Serious: No
  Sender: FDA-Public Use
  Company Number: US-NOVARTISTESTPH-NVSC2022US240060

PATIENT
  Sex: Male

DRUGS (7)
  1. ENTRESTO [Suspect]
     Active Substance: SACUBITRIL\VALSARTAN
     Indication: Cardiac failure congestive
     Dosage: 1 DOSAGE FORM, BID (24/26MG)
     Route: 048
     Dates: start: 20220504
  2. CARVEDILOL [Suspect]
     Active Substance: CARVEDILOL
     Indication: Product used for unknown indication
     Dosage: UNK, BID
     Route: 048
     Dates: start: 20220114
  3. FARXIGA [Suspect]
     Active Substance: DAPAGLIFLOZIN PROPANEDIOL
     Indication: Cardiac failure congestive
     Dosage: UNK, BID
     Route: 048
     Dates: start: 20220518
  4. FARXIGA [Suspect]
     Active Substance: DAPAGLIFLOZIN PROPANEDIOL
     Indication: Chronic kidney disease
  5. SPIRONOLACTONE [Suspect]
     Active Substance: SPIRONOLACTONE
     Indication: Cardiac failure congestive
     Dosage: UNK UNK, BID
     Route: 048
     Dates: start: 20220504
  6. LASIX [Suspect]
     Active Substance: FUROSEMIDE
     Indication: Cardiac failure congestive
     Dosage: UNK, QD
     Route: 048
     Dates: start: 20220114
  7. ELIQUIS [Suspect]
     Active Substance: APIXABAN
     Indication: Implantable defibrillator insertion
     Dosage: UNK, BID
     Route: 048
     Dates: start: 20220114

REACTIONS (4)
  - Dysphonia [Unknown]
  - Throat clearing [Unknown]
  - Hypersomnia [Unknown]
  - Product dose omission issue [Unknown]
